FAERS Safety Report 13413479 (Version 4)
Quarter: 2023Q1

REPORT INFORMATION
  Report Type: Spontaneous
  Country: US (occurrence: US)
  Receive Date: 20170406
  Receipt Date: 20230210
  Transmission Date: 20230418
  Serious: Yes (Other)
  Sender: FDA-Public Use
  Company Number: US-JNJFOC-20170317338

PATIENT
  Sex: Male

DRUGS (5)
  1. RISPERDAL [Suspect]
     Active Substance: RISPERIDONE
     Indication: Bipolar I disorder
     Dosage: IN THE VARYING DOSES OF 0.25 MG, 0.5 MG, 1MG AND 2 MG
     Route: 048
     Dates: start: 20060209, end: 20070412
  2. RISPERDAL [Suspect]
     Active Substance: RISPERIDONE
     Indication: Depression
     Route: 048
     Dates: end: 20070531
  3. RISPERIDONE [Suspect]
     Active Substance: RISPERIDONE
     Indication: Bipolar I disorder
     Route: 048
     Dates: start: 20060209
  4. RISPERIDONE [Suspect]
     Active Substance: RISPERIDONE
     Indication: Depression
     Route: 048
     Dates: start: 20070514, end: 20070531
  5. RISPERIDONE [Suspect]
     Active Substance: RISPERIDONE
     Indication: Irritability

REACTIONS (10)
  - Gynaecomastia [Unknown]
  - Emotional distress [Unknown]
  - Overweight [Recovering/Resolving]
  - Amnesia [Unknown]
  - Disturbance in attention [Unknown]
  - Somnolence [Recovered/Resolved]
  - Initial insomnia [Recovered/Resolved]
  - Fatigue [Recovered/Resolved]
  - Increased appetite [Recovered/Resolved]
  - Treatment noncompliance [Unknown]
